FAERS Safety Report 9353457 (Version 1)
Quarter: 2013Q2

REPORT INFORMATION
  Report Type: Spontaneous
  Country: CA (occurrence: CA)
  Receive Date: 20130618
  Receipt Date: 20130618
  Transmission Date: 20140414
  Serious: Yes (Disabling, Other)
  Sender: FDA-Public Use
  Company Number: CA-ASTRAZENECA-2013SE40869

PATIENT
  Age: 32 Year
  Sex: Female

DRUGS (4)
  1. BUPIVACAINE [Suspect]
     Indication: SPINAL ANAESTHESIA
     Route: 037
  2. FENTANYL [Suspect]
     Indication: SPINAL ANAESTHESIA
     Dosage: 20 MCG ONCE
     Route: 037
  3. MORPHINE [Suspect]
     Indication: SPINAL ANAESTHESIA
     Dosage: 150 MCG ONCE
     Route: 037
  4. PHENYLEPHRINE [Concomitant]
     Dosage: 50 MCG/MIN

REACTIONS (4)
  - Spinal cord ischaemia [Unknown]
  - Monoplegia [Not Recovered/Not Resolved]
  - Bradycardia [Recovered/Resolved]
  - Hypotension [Recovered/Resolved]
